FAERS Safety Report 5480026-X (Version None)
Quarter: 2007Q4

REPORT INFORMATION
  Report Type: 
  Country: None (occurrence: None)
  Receive Date: 20071008
  Receipt Date: 20070926
  Transmission Date: 20080405
  Serious: Yes (Other)
  Sender: FDA-Public Use
  Company Number: US-PFIZER INC-2007081015

PATIENT
  Sex: Male
  Weight: 70.3 kg

DRUGS (7)
  1. DILANTIN [Suspect]
     Indication: CONVULSION
  2. CHANTIX [Suspect]
     Indication: SMOKING CESSATION THERAPY
  3. DEPAKOTE [Concomitant]
  4. RISPERDAL [Concomitant]
  5. VALIUM [Concomitant]
  6. ACIPHEX [Concomitant]
  7. GABITRIL [Concomitant]

REACTIONS (4)
  - ANTICONVULSANT DRUG LEVEL DECREASED [None]
  - ANTICONVULSANT DRUG LEVEL INCREASED [None]
  - DIZZINESS [None]
  - DIZZINESS POSTURAL [None]
